FAERS Safety Report 6157110-0 (Version None)
Quarter: 2009Q2

REPORT INFORMATION
  Report Type: 
  Country: None (occurrence: None)
  Receive Date: 20090413
  Receipt Date: 20090402
  Transmission Date: 20091009
  Serious: Yes (Life-Threatening)
  Sender: FDA-Public Use
  Company Number: GXKR2009CH02251

PATIENT
  Age: 70 Year
  Sex: Male

DRUGS (15)
  1. VALPROIC ACID [Suspect]
     Dosage: 300 MG, QD, ORAL
     Route: 048
     Dates: start: 20080910, end: 20080916
  2. ZUCLOPENTHIXOL HYDROCHLORIDE (ZUCLOPENTHIXOL HYDROCHLORIDE, ZUCLOPENTH [Suspect]
     Indication: ABNORMAL BEHAVIOUR
     Dosage: 2 MG, 5QD, ORAL
     Route: 048
  3. RISPERDAL [Suspect]
     Indication: ABNORMAL BEHAVIOUR
     Dosage: 0.5 MG, BID, ORAL
     Route: 048
     Dates: start: 20080915, end: 20080916
  4. SEROQUEL (QUETIAPINE FUMARATE) COATED TABLET [Concomitant]
  5. INSULIN MIXTARD (INSULIN INJECTION, ISOPHANE) VIAL, 70 % [Concomitant]
  6. SINGULAIR [Concomitant]
  7. ASPIRIN CARDIO (ACETYLSALICYLIC ACID) COATED TABLET [Concomitant]
  8. TAMSULOSIN HYDROCHLORIDE (TAMSULOSIN HYDROCHLORIDE) TABLET [Concomitant]
  9. LASIX [Concomitant]
  10. CALCIMAGON-D3 (CALCIUM CARBONATE, COLECALCIFEROL) CHEWABLE TABLET [Concomitant]
  11. ALDACTONE (SPIRONOLACTONE) FILM-COATED TABLET [Concomitant]
  12. MAGNESIUM ASPARTATE HYDROCHLORIDE (MAGNESIUM ASPARTATE HYDROCHLORIDE) [Concomitant]
  13. OMEPRAZOLE [Concomitant]
  14. PREDNISONE TAB [Concomitant]
  15. REMINYL (GALANTAMINE HYDROBROMIDE) (GALANTAMINE HYDROBROMIDE) [Concomitant]

REACTIONS (9)
  - ABDOMINAL PAIN [None]
  - DRUG INTERACTION [None]
  - HYPERTENSION [None]
  - HYPERTONIA [None]
  - LEUKOCYTOSIS [None]
  - NEUROLEPTIC MALIGNANT SYNDROME [None]
  - RHABDOMYOLYSIS [None]
  - SOMNOLENCE [None]
  - URINARY INCONTINENCE [None]
